FAERS Safety Report 7668729-X (Version None)
Quarter: 2011Q3

REPORT INFORMATION
  Report Type: 
  Country: None (occurrence: None)
  Receive Date: 20110808
  Receipt Date: 20110725
  Transmission Date: 20111222
  Serious: Yes (Other)
  Sender: FDA-Public Use
  Company Number: US-UCBSA-033013

PATIENT
  Sex: Female

DRUGS (19)
  1. ENTOCORT EC [Concomitant]
     Dosage: 2 CAPSULES EVERY DAY IN AM
     Route: 048
     Dates: start: 20110412
  2. IMURAN [Concomitant]
  3. MULTI-VITAMINS [Concomitant]
     Dosage: 1 CAPSULE EVERY DAY
     Route: 048
     Dates: start: 20100318
  4. LEVOTHYROXINE SODIUM [Concomitant]
     Route: 048
     Dates: start: 20100318
  5. ASACOL HD [Concomitant]
     Dosage: 1.6G
     Route: 048
     Dates: start: 20100527
  6. DURAGESIC-100 [Concomitant]
     Dosage: APPLY 1 PATCH (100MCG/H) EVERY 72 HOURS
     Route: 062
     Dates: start: 20100318
  7. CADUET [Concomitant]
     Dosage: 5MG-20MG ONE TABLET EVERY DAY
     Route: 048
     Dates: start: 20100318
  8. VITAMIN D [Concomitant]
     Dosage: 2000 UNITS, EVERYDAY TAKE WITH FOOD
     Route: 048
     Dates: start: 20100318
  9. CIMZIA [Suspect]
     Indication: CROHN'S DISEASE
     Route: 058
     Dates: start: 20110326
  10. LIALDA [Concomitant]
     Dosage: 3 CAPSULES (3.6G) EVERY DAY WITH A MEAL
     Route: 048
     Dates: start: 20110412
  11. PHENERGAN HCL [Concomitant]
     Dosage: INSERT 1 SUPPOSITORY EVERY 6 HOURS AS NEEDED
     Route: 054
     Dates: start: 20100330
  12. CLONAZEPAM [Concomitant]
     Route: 048
     Dates: start: 20100318
  13. FOLIC ACID [Concomitant]
     Route: 048
     Dates: start: 20100318
  14. ALPRAZOLAM [Concomitant]
     Dates: start: 20100318
  15. NEURPATH-B [Concomitant]
     Dosage: 2MG-3MG-35MG
     Dates: start: 20110412
  16. EFFEXOR [Concomitant]
     Dosage: 1 TABLET 2 TIMES EVERY DAY WITH FOOD
     Route: 048
     Dates: start: 20100318
  17. BENADRYL [Concomitant]
     Dosage: AT BED TIME
     Route: 048
     Dates: start: 20110127
  18. HYDROCODONE BITARTRATE AND ACETAMINOPHEN [Concomitant]
     Dosage: AS NEEDED
     Route: 048
     Dates: start: 20100318
  19. METADATE CD [Concomitant]
     Dosage: IN THE MORNING BEFORE BREAKFAST
     Route: 048

REACTIONS (6)
  - HEPATIC CYST [None]
  - LYMPHADENOPATHY [None]
  - HEPATIC LESION [None]
  - CROHN'S DISEASE [None]
  - FEELING ABNORMAL [None]
  - DIZZINESS [None]
